FAERS Safety Report 22902825 (Version 5)
Quarter: 2024Q1

REPORT INFORMATION
  Report Type: Spontaneous
  Country: US (occurrence: US)
  Receive Date: 20230904
  Receipt Date: 20240203
  Transmission Date: 20240409
  Serious: Yes (Other)
  Sender: FDA-Public Use
  Company Number: US-ABBVIE-5391174

PATIENT
  Age: 32 Year
  Sex: Female
  Weight: 57 kg

DRUGS (10)
  1. LILETTA [Suspect]
     Active Substance: LEVONORGESTREL
     Indication: Product used for unknown indication
     Dosage: TIME INTERVAL: AS NECESSARY: FORM STRENGH-52MG?FREQUENCY TEXT: 1 EVERY 8 YEARS
     Route: 015
     Dates: start: 20230810
  2. LILETTA [Suspect]
     Active Substance: LEVONORGESTREL
     Dosage: TIME INTERVAL: AS NECESSARY: FORM STRENGH-52MG?FREQUENCY TEXT: 1 EVERY 8 YEARS
     Route: 015
     Dates: start: 20230817
  3. VALACYCLOVIR [Concomitant]
     Active Substance: VALACYCLOVIR HYDROCHLORIDE
     Indication: Product used for unknown indication
     Dosage: TAKE 1 TABLET BY ORAL ROUTE TWICE A DAY UNTIL DELIVERY
     Route: 048
     Dates: start: 20230806
  4. VITAMINS [Concomitant]
     Active Substance: VITAMINS
     Indication: Product used for unknown indication
     Dosage: TAKE 1 TABLET BY ORAL ROUTE EVERY DAY
     Route: 048
  5. OXYCODONE [Concomitant]
     Active Substance: OXYCODONE\OXYCODONE HYDROCHLORIDE
     Indication: Pain
     Dosage: TIME INTERVAL: AS NECESSARY: TAKE 1 CAPSULE BY ORAL ROUTE EVERY 4 HOUR AS NECESSARY FOR SEVERE PAIN
     Route: 048
     Dates: start: 20230816
  6. TETANUS TOXOID, REDUCED DIPHTHERIA TOXOID AND ACELLULAR PERTUSSIS VACC [Concomitant]
     Active Substance: TETANUS TOXOID, REDUCED DIPHTHERIA TOXOID AND ACELLULAR PERTUSSIS VACCINE ADSORBED, TDAP
     Indication: Product used for unknown indication
     Route: 065
     Dates: start: 20230424, end: 20230424
  7. TETANUS TOXOID, REDUCED DIPHTHERIA TOXOID AND ACELLULAR PERTUSSIS VACC [Concomitant]
     Active Substance: TETANUS TOXOID, REDUCED DIPHTHERIA TOXOID AND ACELLULAR PERTUSSIS VACCINE ADSORBED, TDAP
     Indication: Product used for unknown indication
     Route: 065
     Dates: start: 20191220, end: 20191220
  8. PFIZER-BIONTECH COVID-19 VACCINE [Concomitant]
     Active Substance: TOZINAMERAN
     Indication: COVID-19 immunisation
     Dosage: 1 IN ONCE
     Route: 030
     Dates: start: 20210612, end: 20210612
  9. PFIZER-BIONTECH COVID-19 VACCINE [Concomitant]
     Active Substance: TOZINAMERAN
     Indication: COVID-19 immunisation
     Dosage: ONE IN ONCE
     Route: 030
     Dates: start: 20210126, end: 20210126
  10. PFIZER-BIONTECH COVID-19 VACCINE [Concomitant]
     Active Substance: TOZINAMERAN
     Indication: COVID-19 immunisation
     Dosage: 1 IN ONCE
     Route: 030
     Dates: start: 20210216, end: 20210216

REACTIONS (15)
  - Uterine perforation [Recovered/Resolved]
  - Poor quality sleep [Unknown]
  - Uterine perforation [Recovered/Resolved]
  - Device dislocation [Unknown]
  - Abdominal adhesions [Unknown]
  - Medical device pain [Unknown]
  - Pelvic pain [Unknown]
  - Bladder catheterisation [Unknown]
  - Proctalgia [Unknown]
  - Adhesiolysis [Unknown]
  - Anorectal discomfort [Unknown]
  - Device dislocation [Unknown]
  - Abdominal pain [Unknown]
  - Uterine haemorrhage [Unknown]
  - Device issue [Unknown]

NARRATIVE: CASE EVENT DATE: 20230816
